FAERS Safety Report 16790492 (Version 2)
Quarter: 2019Q3

REPORT INFORMATION
  Report Type: Spontaneous
  Country: US (occurrence: US)
  Receive Date: 20190910
  Receipt Date: 20190926
  Transmission Date: 20191005
  Serious: No
  Sender: FDA-Public Use
  Company Number: US-PFIZER INC-2019385677

PATIENT
  Age: 69 Year
  Sex: Male
  Weight: 57.61 kg

DRUGS (3)
  1. RAPAMUNE [Suspect]
     Active Substance: SIROLIMUS
     Indication: GRAFT VERSUS HOST DISEASE
     Dosage: 1 MG, UNK (0.5MG TWO TABS MONDAY, WEDNESDAY, FRIDAY AND ONE TAB ALL OTHER DAY)
     Dates: start: 201908
  2. RAPAMUNE [Suspect]
     Active Substance: SIROLIMUS
     Indication: STEM CELL TRANSPLANT
     Dosage: 0.5 MG, 1X/DAY
     Route: 048
     Dates: end: 201908
  3. RAPAMUNE [Suspect]
     Active Substance: SIROLIMUS
     Indication: IMMUNOSUPPRESSION
     Dosage: 0.5 MG, DAILY

REACTIONS (3)
  - Laboratory test abnormal [Unknown]
  - Product use in unapproved indication [Unknown]
  - Off label use [Unknown]

NARRATIVE: CASE EVENT DATE: 2019
